FAERS Safety Report 25492622 (Version 1)
Quarter: 2025Q2

REPORT INFORMATION
  Report Type: Spontaneous
  Country: ES (occurrence: US)
  Receive Date: 20250630
  Receipt Date: 20250630
  Transmission Date: 20250717
  Serious: No
  Sender: AUROBINDO
  Company Number: ES-AUROBINDO-AUR-APL-2025-024643

PATIENT
  Age: 66 Year
  Sex: Female
  Weight: 66.67 kg

DRUGS (1)
  1. LENALIDOMIDE [Suspect]
     Active Substance: LENALIDOMIDE
     Indication: Plasma cell myeloma
     Route: 048
     Dates: start: 20250408

REACTIONS (2)
  - Diarrhoea [Recovering/Resolving]
  - Nausea [Recovering/Resolving]
